FAERS Safety Report 4692216-4 (Version None)
Quarter: 2005Q2

REPORT INFORMATION
  Report Type: 
  Country: None (occurrence: None)
  Receive Date: 20050614
  Receipt Date: 20050601
  Transmission Date: 20051028
  Serious: Yes (Hospitalization)
  Sender: FDA-Public Use
  Company Number: RENA-11397

PATIENT
  Age: 55 Year
  Sex: Male

DRUGS (7)
  1. PHOSBLOCK - 250 MG TABLET [Suspect]
     Indication: HYPERPHOSPHATAEMIA
     Dosage: 2.25 G DAILY PO
     Route: 048
     Dates: start: 20050226
  2. VALSARTAN [Concomitant]
  3. GUANABENZ ACETATE [Concomitant]
  4. FALECALCITRIOL (VITAMIN D3) [Concomitant]
  5. NIFEDIPINE [Concomitant]
  6. DOXAZOSIN MESYLATE [Concomitant]
  7. ZOPICLONE [Concomitant]

REACTIONS (2)
  - HAEMATEMESIS [None]
  - ILEUS [None]
